FAERS Safety Report 9631131 (Version 2)
Quarter: 2013Q4

REPORT INFORMATION
  Report Type: Spontaneous
  Country: IN (occurrence: None)
  Receive Date: 20131011
  Receipt Date: 20131030
  Transmission Date: 20140711
  Serious: Yes (Hospitalization)
  Sender: FDA-Public Use
  Company Number: B0929219A

PATIENT
  Age: 26 Year
  Sex: Female

DRUGS (5)
  1. LAMOTRIGINE (FORMULATION UNKNOWN) (GENERIC) (LAMOTRIGINE) [Suspect]
     Indication: PRODUCT USED FOR UNKNOWN INDICATION
  2. VALPROIC ACID [Suspect]
     Indication: BIPOLAR DISORDER
  3. PROPRANOLOL HYDROCHLORIDE [Concomitant]
  4. CLOMIPRAMINE HCL [Concomitant]
  5. RISPERIDONE [Concomitant]

REACTIONS (3)
  - Rash [None]
  - Oral mucosa erosion [None]
  - Toxic epidermal necrolysis [None]
